FAERS Safety Report 16174000 (Version 1)
Quarter: 2019Q2

REPORT INFORMATION
  Report Type: Spontaneous
  Country: US (occurrence: US)
  Receive Date: 20190409
  Receipt Date: 20190409
  Transmission Date: 20190711
  Serious: No
  Sender: FDA-Public Use
  Company Number: US-SUNOVION-2019SUN001362

PATIENT

DRUGS (2)
  1. LATUDA [Suspect]
     Active Substance: LURASIDONE HYDROCHLORIDE
     Indication: ANXIETY
  2. LATUDA [Suspect]
     Active Substance: LURASIDONE HYDROCHLORIDE
     Indication: DEPRESSION
     Dosage: UNK
     Route: 048

REACTIONS (14)
  - Sneezing [Unknown]
  - Snoring [Unknown]
  - Cogwheel rigidity [Unknown]
  - Off label use [Unknown]
  - Coagulopathy [Unknown]
  - Contusion [Unknown]
  - Arthralgia [Unknown]
  - Weight increased [Unknown]
  - Drooling [Unknown]
  - Hypoaesthesia [Unknown]
  - Screaming [Unknown]
  - Hyperhidrosis [Unknown]
  - Speech disorder [Unknown]
  - Flatulence [Unknown]
